FAERS Safety Report 5213518-9 (Version None)
Quarter: 2007Q1

REPORT INFORMATION
  Report Type: 
  Country: None (occurrence: None)
  Receive Date: 20070119
  Receipt Date: 20070110
  Transmission Date: 20070707
  Serious: Yes (Life-Threatening, Hospitalization, Disabling)
  Sender: FDA-Public Use
  Company Number: JP-ROCHE-468244

PATIENT
  Age: 54 Year
  Sex: Female
  Weight: 45.2 kg

DRUGS (18)
  1. CAPECITABINE [Suspect]
     Indication: GASTRIC CANCER
     Dosage: 1000 MG/M2 GIVEN TWICE DAILY FOR 14 DAYS EVERY 3 WEEKS (FROM PM OF DAY 1 TO AM OF DAY 15 AS PER PRO+
     Route: 048
     Dates: start: 20060809, end: 20061017
  2. TRASTUZUMAB [Suspect]
     Indication: GASTRIC CANCER
     Dosage: LOADING DOSE 8MG/KG INFUSION ON DAY 1 AS PER PROTOCOL.
     Route: 042
     Dates: start: 20060809, end: 20060809
  3. TRASTUZUMAB [Suspect]
     Dosage: MAINTENANCE DOSE 6 MG/KG INFUSION, 1 PER 3 WEEKS AS PER PROTOCOL.
     Route: 042
     Dates: start: 20060830, end: 20061017
  4. CISPLATIN [Suspect]
     Indication: GASTRIC CANCER
     Dosage: 80 MG/M2 ON DAY 1 OF THREE WEEK CYCLE AS PER PROTOCOL.
     Route: 042
     Dates: start: 20060809, end: 20061017
  5. HUMAN INSULIN [Concomitant]
     Dosage: A TOTAL DAILY DOSE OF 4 UNIT WAS ADMINISTERED FROM 26 OCT 2006 - 28 OCT 2006. THEREAFTER, THE TOTAL+
     Dates: start: 20061026
  6. OMEPRAZOLE SODIUM [Concomitant]
     Dates: start: 20061028
  7. SPIRONOLACTONE [Concomitant]
     Dates: start: 20060821, end: 20061023
  8. LANSOPRAZOLE [Concomitant]
     Dates: start: 20060826, end: 20061023
  9. POTASSIUM L-ASPARTATE [Concomitant]
     Dates: start: 20060828, end: 20061023
  10. UNSPECIFIED DRUG [Concomitant]
     Dosage: REPORTED AS ^FLUID INFUSION^
     Dates: start: 20061016, end: 20061023
  11. FAMOTIDINE [Concomitant]
     Dates: start: 20061017, end: 20061023
  12. 1 CONCOMITANT DRUG [Concomitant]
     Dosage: REPORTED AS ^METOCLOPRAMIDE HYDROCHLORIDE^
     Dates: start: 20061016
  13. DOMPERIDONE [Concomitant]
     Dates: start: 20061017
  14. 1 CONCOMITANT DRUG [Concomitant]
     Dosage: HYDROXYZINE PAMOATE
     Dates: start: 20061017
  15. NIFEDIPINE [Concomitant]
     Dates: start: 20061018
  16. HYDROCORTISONE SODIUM PHOSPHATE [Concomitant]
     Dates: start: 20061018
  17. 1 CONCOMITANT DRUG [Concomitant]
     Dosage: IVH
     Dates: start: 20061024
  18. SENNOSIDE [Concomitant]
     Dates: start: 20060807, end: 20061023

REACTIONS (7)
  - ASCITES [None]
  - DISEASE PROGRESSION [None]
  - HYPERTENSION [None]
  - NAUSEA [None]
  - REVERSIBLE POSTERIOR LEUKOENCEPHALOPATHY SYNDROME [None]
  - VISUAL ACUITY REDUCED [None]
  - VOMITING [None]
